FAERS Safety Report 4869851-3 (Version None)
Quarter: 2005Q4

REPORT INFORMATION
  Report Type: 
  Country: None (occurrence: None)
  Receive Date: 20051230
  Receipt Date: 20051005
  Transmission Date: 20060501
  Serious: Yes (Hospitalization)
  Sender: FDA-Public Use
  Company Number: US-MERCK-0510USA04047

PATIENT
  Sex: Male
  Weight: 73 kg

DRUGS (21)
  1. VIOXX [Suspect]
     Indication: ARTHRITIS
     Route: 048
  2. ARTIFICIAL TEARS [Concomitant]
     Route: 047
  3. CALCIUM POLYCARBOPHIL [Concomitant]
     Route: 048
  4. CAPSAICIN [Concomitant]
     Route: 061
  5. CLOPIDOGREL BISULFATE [Concomitant]
     Route: 048
  6. DILTIAZEM HYDROCHLORIDE [Concomitant]
     Route: 048
  7. FLUTICASONE PROPIONATE [Concomitant]
     Route: 055
  8. HYDRALAZINE [Concomitant]
     Route: 048
  9. LISINOPRIL [Concomitant]
     Indication: BLOOD PRESSURE
     Route: 048
  10. LORATADINE [Concomitant]
     Indication: HYPERSENSITIVITY
     Route: 048
  11. NORTRIPTYLINE [Concomitant]
     Indication: MIGRAINE
     Route: 048
  12. OMEPRAZOLE [Concomitant]
     Route: 048
  13. PENTOXIFYLLINE [Concomitant]
     Route: 048
  14. SILDENAFIL CITRATE [Concomitant]
     Indication: ERECTILE DYSFUNCTION
     Route: 048
  15. SIMVASTATIN [Concomitant]
     Indication: BLOOD CHOLESTEROL INCREASED
     Route: 048
  16. TERAZOSIN HYDROCHLORIDE [Concomitant]
     Route: 048
  17. [COMPOSITION UNSPECIFIED] [Concomitant]
     Route: 061
  18. WITCH HAZEL [Concomitant]
     Indication: HAEMORRHOIDS
     Route: 061
  19. ASPIRIN [Concomitant]
     Route: 048
  20. [COMPOSITION UNSPECIFIED] [Concomitant]
     Indication: BLOOD PRESSURE INCREASED
     Route: 048
     Dates: start: 20040201
  21. VITAMINS (UNSPECIFIED) [Concomitant]
     Route: 065

REACTIONS (26)
  - ABDOMINAL HERNIA [None]
  - BLOOD PRESSURE ABNORMAL [None]
  - BUNDLE BRANCH BLOCK LEFT [None]
  - CARDIAC ANEURYSM [None]
  - CARDIAC DISORDER [None]
  - CARDIAC FAILURE ACUTE [None]
  - CARDIAC FAILURE CONGESTIVE [None]
  - CARDIOMEGALY [None]
  - CARDIOVASCULAR DISORDER [None]
  - CHONDROCALCINOSIS [None]
  - CORONARY ARTERY DISEASE [None]
  - ERECTILE DYSFUNCTION [None]
  - HAEMORRHOIDS [None]
  - HYPERTENSION [None]
  - INTERMITTENT CLAUDICATION [None]
  - LEFT VENTRICULAR FAILURE [None]
  - MIGRAINE [None]
  - MITRAL VALVE INCOMPETENCE [None]
  - OSTEOARTHRITIS [None]
  - OVERDOSE [None]
  - PULMONARY HYPERTENSION [None]
  - RENAL CYST [None]
  - SINUS TACHYCARDIA [None]
  - TREATMENT NONCOMPLIANCE [None]
  - TRICUSPID VALVE INCOMPETENCE [None]
  - VENTRICULAR HYPERTROPHY [None]
